FAERS Safety Report 5235744-5 (Version None)
Quarter: 2007Q1

REPORT INFORMATION
  Report Type: 
  Country: None (occurrence: None)
  Receive Date: 20070212
  Receipt Date: 20070130
  Transmission Date: 20070707
  Serious: Yes (Other)
  Sender: FDA-Public Use
  Company Number: US-PFIZER INC-2007007068

PATIENT
  Age: 76 Year
  Sex: Male
  Weight: 88.9 kg

DRUGS (7)
  1. LYRICA [Suspect]
     Indication: NEUROPATHY
  2. MOBIC [Concomitant]
  3. ZOCOR [Concomitant]
  4. TRICOR [Concomitant]
  5. COREG [Concomitant]
  6. VITAMIN CAP [Concomitant]
  7. FISH OIL [Concomitant]

REACTIONS (16)
  - ACTIVITIES OF DAILY LIVING IMPAIRED [None]
  - COORDINATION ABNORMAL [None]
  - DIZZINESS [None]
  - DRY MOUTH [None]
  - DYSPHAGIA [None]
  - ERECTILE DYSFUNCTION [None]
  - FATIGUE [None]
  - FEELING ABNORMAL [None]
  - FEELING DRUNK [None]
  - GAIT DISTURBANCE [None]
  - MENTAL IMPAIRMENT [None]
  - SOMNOLENCE [None]
  - SPEECH DISORDER [None]
  - THINKING ABNORMAL [None]
  - VISION BLURRED [None]
  - WEIGHT LOSS POOR [None]
